FAERS Safety Report 8925399 (Version 1)
Quarter: 2012Q4

REPORT INFORMATION
  Report Type: 
  Country: US (occurrence: US)
  Receive Date: 20121126
  Receipt Date: 20121126
  Transmission Date: 20130627
  Serious: No
  Sender: FDA-Public Use
  Company Number: US-PFIZER INC-2012293888

PATIENT
  Age: 82 Year
  Sex: Female
  Weight: 68.03 kg

DRUGS (1)
  1. LYRICA [Suspect]
     Dosage: 50 mg, 2x/day
     Dates: start: 2012, end: 2012

REACTIONS (4)
  - Feeling abnormal [Unknown]
  - Pain in extremity [Unknown]
  - Pain [Unknown]
  - Drug ineffective [Unknown]
